FAERS Safety Report 12777852 (Version 1)
Quarter: 2016Q3

REPORT INFORMATION
  Report Type: Spontaneous
  Country: US (occurrence: US)
  Receive Date: 20160924
  Receipt Date: 20160924
  Transmission Date: 20161109
  Serious: No
  Sender: FDA-Public Use
  Company Number: US-JAZZ-2016-US-010737

PATIENT
  Sex: Male

DRUGS (17)
  1. NYSTATIN. [Concomitant]
     Active Substance: NYSTATIN
  2. FISH OIL [Concomitant]
     Active Substance: FISH OIL
  3. METHOCARBAMOL. [Concomitant]
     Active Substance: METHOCARBAMOL
  4. XYREM [Suspect]
     Active Substance: SODIUM OXYBATE
     Indication: INSOMNIA
     Dosage: 2.25 G, BID
     Route: 048
     Dates: start: 201312, end: 201312
  5. XYREM [Suspect]
     Active Substance: SODIUM OXYBATE
     Dosage: DOSE ADJUSTMENTS
     Route: 048
     Dates: start: 201312, end: 201404
  6. DIAZEPAM. [Concomitant]
     Active Substance: DIAZEPAM
  7. SEROQUEL [Concomitant]
     Active Substance: QUETIAPINE FUMARATE
  8. NORCO [Concomitant]
     Active Substance: ACETAMINOPHEN\HYDROCODONE BITARTRATE
  9. CIALIS [Concomitant]
     Active Substance: TADALAFIL
  10. PROPRANOLOL [Concomitant]
     Active Substance: PROPRANOLOL\PROPRANOLOL HYDROCHLORIDE
  11. SUMATRIPTAN. [Concomitant]
     Active Substance: SUMATRIPTAN
  12. XYREM [Suspect]
     Active Substance: SODIUM OXYBATE
     Dosage: 5.5 G, BID
     Route: 048
     Dates: start: 201404
  13. FLONASE [Concomitant]
     Active Substance: FLUTICASONE PROPIONATE
  14. HYDROCODONE/ACETAMINOPHEN [Concomitant]
     Active Substance: ACETAMINOPHEN\HYDROCODONE
  15. METHOCARBAMOL. [Concomitant]
     Active Substance: METHOCARBAMOL
  16. OMEPRAZOLE. [Concomitant]
     Active Substance: OMEPRAZOLE
  17. DEXTROAMPHETAMINE. [Concomitant]
     Active Substance: DEXTROAMPHETAMINE

REACTIONS (1)
  - Nasopharyngitis [Not Recovered/Not Resolved]
